FAERS Safety Report 13097342 (Version 1)
Quarter: 2017Q1

REPORT INFORMATION
  Report Type: Spontaneous
  Country: US (occurrence: US)
  Receive Date: 20170106
  Receipt Date: 20170106
  Transmission Date: 20170428
  Serious: Yes (Life-Threatening, Hospitalization)
  Sender: FDA-Public Use
  Company Number: None

PATIENT
  Age: 78 Year
  Sex: Male
  Weight: 93.1 kg

DRUGS (1)
  1. CARFILZOMIB [Suspect]
     Active Substance: CARFILZOMIB
     Indication: PLASMA CELL MYELOMA
     Route: 042
     Dates: start: 20161220, end: 20161220

REACTIONS (11)
  - Pyrexia [None]
  - Thrombocytopenia [None]
  - Wheezing [None]
  - Hypertension [None]
  - International normalised ratio abnormal [None]
  - Thrombotic microangiopathy [None]
  - Cough [None]
  - Haemolytic anaemia [None]
  - Diarrhoea [None]
  - Acute kidney injury [None]
  - Haemolytic uraemic syndrome [None]

NARRATIVE: CASE EVENT DATE: 20161224
